FAERS Safety Report 4300896-8 (Version None)
Quarter: 2004Q1

REPORT INFORMATION
  Report Type: 
  Country: None (occurrence: None)
  Receive Date: 20040220
  Receipt Date: 20030411
  Transmission Date: 20041129
  Serious: Yes (Hospitalization, Disabling, Other)
  Sender: FDA-Public Use
  Company Number: WAES 0304USA01288

PATIENT
  Age: 53 Year
  Sex: Female
  Weight: 80 kg

DRUGS (11)
  1. ASPIRIN [Concomitant]
     Indication: OSTEOARTHRITIS
  2. PLAVIX [Concomitant]
  3. DYAZIDE [Concomitant]
     Indication: HYPERTENSION
  4. AVAPRO [Concomitant]
     Indication: HYPERTENSION
  5. ATIVAN [Concomitant]
  6. MECLIZINE [Concomitant]
  7. LOPRESSOR [Concomitant]
     Indication: HYPERTENSION
  8. MIDAZOLAM [Concomitant]
  9. VIOXX [Suspect]
     Indication: OSTEOARTHRITIS
     Route: 048
     Dates: start: 19991101, end: 20000701
  10. VIOXX [Suspect]
     Route: 048
     Dates: start: 20000701, end: 20010801
  11. MIACALCIN [Concomitant]

REACTIONS (15)
  - ANGINA PECTORIS [None]
  - BLOOD CHOLESTEROL INCREASED [None]
  - BUNDLE BRANCH BLOCK RIGHT [None]
  - CHEST X-RAY ABNORMAL [None]
  - CORONARY ARTERY DISEASE [None]
  - CORONARY ARTERY THROMBOSIS [None]
  - INJURY [None]
  - LOW DENSITY LIPOPROTEIN INCREASED [None]
  - MEDIASTINAL HAEMATOMA [None]
  - MITRAL VALVE INCOMPETENCE [None]
  - PNEUMOTHORAX [None]
  - POST PROCEDURAL COMPLICATION [None]
  - QRS AXIS ABNORMAL [None]
  - VENTRICULAR HYPOKINESIA [None]
  - VENTRICULAR TACHYCARDIA [None]
